FAERS Safety Report 25490843 (Version 2)
Quarter: 2025Q3

REPORT INFORMATION
  Report Type: Spontaneous
  Country: CO (occurrence: CO)
  Receive Date: 20250628
  Receipt Date: 20250705
  Transmission Date: 20251021
  Serious: Yes (Hospitalization)
  Sender: AMGEN
  Company Number: CO-AMGEN-COLSP2025128298

PATIENT
  Age: 6 Year
  Sex: Female

DRUGS (1)
  1. INTERFERON GAMMA [Suspect]
     Active Substance: INTERFERON GAMMA
     Indication: Immunodeficiency
     Route: 065

REACTIONS (1)
  - Lymphadenopathy [Unknown]

NARRATIVE: CASE EVENT DATE: 20250609
